FAERS Safety Report 26098091 (Version 3)
Quarter: 2025Q4

REPORT INFORMATION
  Report Type: Report from Study
  Country: CA (occurrence: CA)
  Receive Date: 20251127
  Receipt Date: 20251231
  Transmission Date: 20260118
  Serious: Yes (Other)
  Sender: ALEXION PHARMACEUTICALS
  Company Number: CA-AstraZeneca-CH-00992810A

PATIENT
  Sex: Male
  Weight: 100 kg

DRUGS (5)
  1. SOLIRIS [Suspect]
     Active Substance: ECULIZUMAB
     Indication: Paroxysmal nocturnal haemoglobinuria
     Dosage: INITIAL DOSING 600 MILLIGRAM Q 7 DAYS
     Dates: start: 20200228, end: 20200320
  2. SOLIRIS [Suspect]
     Active Substance: ECULIZUMAB
     Dosage: MAINTENANCE DOSING:900 MILLIGRAM Q14 DAYS
  3. SOLIRIS [Suspect]
     Active Substance: ECULIZUMAB
     Dosage: UNK
     Route: 065
  4. LIPITOR [Concomitant]
     Active Substance: ATORVASTATIN CALCIUM
     Dosage: 10 MILLIGRAM, QD
     Route: 065
  5. ASPIRIN [Concomitant]
     Active Substance: ASPIRIN
     Dosage: 81 MILLIGRAM, QD
     Route: 065

REACTIONS (4)
  - Cytopenia [Unknown]
  - Cerebrovascular accident [Unknown]
  - Anaemia [Unknown]
  - Laboratory test abnormal [Unknown]
